FAERS Safety Report 7546099-5 (Version None)
Quarter: 2011Q2

REPORT INFORMATION
  Report Type: 
  Country: None (occurrence: None)
  Receive Date: 20110614
  Receipt Date: 20110608
  Transmission Date: 20111010
  Serious: Yes (Hospitalization, Other)
  Sender: FDA-Public Use
  Company Number: PHHO2009DE14208

PATIENT
  Sex: Male
  Weight: 87 kg

DRUGS (10)
  1. SILDENAFIL CITRATE [Concomitant]
     Indication: PULMONARY ARTERIAL HYPERTENSION
  2. GLEEVEC [Suspect]
     Indication: PULMONARY ARTERIAL HYPERTENSION
     Dosage: 200 MG
  3. KALINOR [Concomitant]
  4. PLACEBO [Suspect]
     Indication: PULMONARY ARTERIAL HYPERTENSION
     Dosage: PLACEBO
     Route: 048
     Dates: start: 20090916
  5. TRACLEER [Concomitant]
     Indication: PULMONARY ARTERIAL HYPERTENSION
  6. MARCUMAR [Concomitant]
     Indication: PULMONARY ARTERIAL HYPERTENSION
  7. PANTOPRAZOLE [Concomitant]
     Indication: DYSPEPSIA
  8. AMOXICILLIN [Concomitant]
     Indication: RESPIRATORY TRACT INFECTION
  9. AZITHROMYCIN [Concomitant]
     Indication: RESPIRATORY TRACT INFECTION
  10. AMOXICILLIN [Concomitant]
     Indication: TOOTH INFECTION

REACTIONS (7)
  - ABDOMINAL PAIN UPPER [None]
  - DYSPEPSIA [None]
  - SYNCOPE [None]
  - SNEEZING [None]
  - CHEST DISCOMFORT [None]
  - MALAISE [None]
  - PULMONARY HYPERTENSION [None]
